FAERS Safety Report 8489644-8 (Version None)
Quarter: 2012Q3

REPORT INFORMATION
  Report Type: 
  Country: None (occurrence: None)
  Receive Date: 20120705
  Receipt Date: 20120626
  Transmission Date: 20120928
  Serious: Yes (Other)
  Sender: FDA-Public Use
  Company Number: US-JNJFOC-20120701260

PATIENT
  Age: 71 Year
  Sex: Male
  Weight: 83.9 kg

DRUGS (6)
  1. LIPITOR [Suspect]
     Indication: PRODUCT USED FOR UNKNOWN INDICATION
     Route: 065
  2. CELEBREX [Suspect]
     Indication: PRODUCT USED FOR UNKNOWN INDICATION
     Route: 065
  3. UNKNOWN MEDICATION [Concomitant]
     Route: 065
  4. NICOTROL [Suspect]
     Indication: PRODUCT USED FOR UNKNOWN INDICATION
     Route: 065
  5. LYRICA [Suspect]
     Indication: FIBROMYALGIA
     Route: 048
  6. VIAGRA [Suspect]
     Indication: PRODUCT USED FOR UNKNOWN INDICATION
     Route: 065

REACTIONS (4)
  - DRUG INEFFECTIVE [None]
  - FEELING ABNORMAL [None]
  - ADVERSE EVENT [None]
  - FIBROMYALGIA [None]
